FAERS Safety Report 7025421-2 (Version None)
Quarter: 2010Q4

REPORT INFORMATION
  Report Type: 
  Country: None (occurrence: None)
  Receive Date: 20101001
  Receipt Date: 20100924
  Transmission Date: 20110411
  Serious: Yes (Death, Other)
  Sender: FDA-Public Use
  Company Number: PHEH2010US03437

PATIENT
  Sex: Female

DRUGS (1)
  1. TEGRETOL [Suspect]

REACTIONS (25)
  - ALOPECIA [None]
  - ANHEDONIA [None]
  - ANXIETY [None]
  - BLINDNESS [None]
  - DEATH [None]
  - DEFORMITY [None]
  - GENERAL PHYSICAL HEALTH DETERIORATION [None]
  - HYPERSENSITIVITY [None]
  - INJURY [None]
  - INTERNAL INJURY [None]
  - MUCOUS MEMBRANE DISORDER [None]
  - NAIL DISORDER [None]
  - PAIN [None]
  - PIGMENTATION DISORDER [None]
  - PRURITUS [None]
  - RASH [None]
  - SCAR [None]
  - SKIN BURNING SENSATION [None]
  - SKIN DISCOLOURATION [None]
  - SKIN EXFOLIATION [None]
  - SKIN LESION [None]
  - STEVENS-JOHNSON SYNDROME [None]
  - SWELLING [None]
  - TOXIC EPIDERMAL NECROLYSIS [None]
  - URTICARIA [None]
